FAERS Safety Report 18753466 (Version 1)
Quarter: 2021Q1

REPORT INFORMATION
  Report Type: Other
  Country: DK (occurrence: DK)
  Receive Date: 20210118
  Receipt Date: 20210118
  Transmission Date: 20210419
  Serious: Yes (Other)
  Sender: FDA-Public Use
  Company Number: DK-COLLEGIUM PHARMACEUTICAL, INC.-2021CGM00012

PATIENT
  Age: 78 Year
  Sex: Male

DRUGS (12)
  1. LACTULOSE. [Concomitant]
     Active Substance: LACTULOSE
     Dosage: UNK
     Dates: start: 202007
  2. EZETROL [Concomitant]
     Active Substance: EZETIMIBE
     Dosage: UNK
     Dates: start: 201912
  3. MOVICOL [Concomitant]
     Active Substance: POLYETHYLENE GLYCOL 3350\POTASSIUM CHLORIDE\SODIUM BICARBONATE\SODIUM CHLORIDE
     Dosage: UNK
     Dates: start: 202007
  4. NUCYNTA ER [Suspect]
     Active Substance: TAPENTADOL HYDROCHLORIDE
     Indication: PAIN
     Dosage: 200 MG, 1X/DAY
     Route: 048
     Dates: start: 20201204, end: 20201207
  5. TRADOLAN [Concomitant]
     Active Substance: TRAMADOL
     Dosage: UNK
     Dates: start: 202007
  6. DERMOVAT [Concomitant]
     Active Substance: CLOBETASOL
     Dosage: UNK
     Dates: start: 202007
  7. IMDUR [Concomitant]
     Active Substance: ISOSORBIDE MONONITRATE
     Dosage: UNK
     Dates: start: 201908
  8. COSOPT [Concomitant]
     Active Substance: DORZOLAMIDE HYDROCHLORIDE\TIMOLOL MALEATE
     Dosage: UNK
     Dates: start: 202007
  9. PANODIL [Concomitant]
     Active Substance: ACETAMINOPHEN
     Dosage: UNK
     Dates: start: 202007
  10. KALEORID [Concomitant]
     Active Substance: POTASSIUM CHLORIDE
     Dosage: UNK
     Dates: start: 202007
  11. ROSUVASTATIN. [Concomitant]
     Active Substance: ROSUVASTATIN
     Dosage: UNK
     Dates: start: 202007
  12. ELIQUIS [Concomitant]
     Active Substance: APIXABAN
     Dosage: UNK
     Dates: start: 202007

REACTIONS (3)
  - Muscle twitching [Unknown]
  - Hallucination, visual [Unknown]
  - Cognitive disorder [Unknown]

NARRATIVE: CASE EVENT DATE: 20201205
